FAERS Safety Report 5454884-9 (Version None)
Quarter: 2007Q3

REPORT INFORMATION
  Report Type: 
  Country: None (occurrence: None)
  Receive Date: 20070917
  Receipt Date: 20061024
  Transmission Date: 20080115
  Serious: No
  Sender: FDA-Public Use
  Company Number: US-ASTRAZENECA-2006UW20515

PATIENT
  Age: 46 Year
  Sex: Female
  Weight: 113.4 kg

DRUGS (7)
  1. SEROQUEL [Suspect]
     Indication: BIPOLAR DISORDER
     Route: 048
     Dates: start: 19971001
  2. SEROQUEL [Suspect]
     Indication: POST-TRAUMATIC STRESS DISORDER
     Route: 048
     Dates: start: 19971001
  3. KLONOPIN [Concomitant]
  4. HYDROCODONE [Concomitant]
  5. MIRAPEX [Concomitant]
     Indication: RESTLESS LEGS SYNDROME
  6. TRILEPTAL [Concomitant]
  7. IBUPROFEN [Concomitant]

REACTIONS (5)
  - FATIGUE [None]
  - FOOD CRAVING [None]
  - RESTLESS LEGS SYNDROME [None]
  - THERAPEUTIC RESPONSE DECREASED [None]
  - WEIGHT INCREASED [None]
